FAERS Safety Report 24178498 (Version 1)
Quarter: 2024Q3

REPORT INFORMATION
  Report Type: Spontaneous
  Country: US (occurrence: US)
  Receive Date: 20240806
  Receipt Date: 20240806
  Transmission Date: 20241016
  Serious: Yes (Hospitalization)
  Sender: CHEPLAPHARM
  Company Number: US-CHEPLA-2024010039

PATIENT
  Sex: Female

DRUGS (5)
  1. CLONAZEPAM [Suspect]
     Active Substance: CLONAZEPAM
  2. QUETIAPINE [Suspect]
     Active Substance: QUETIAPINE
  3. FLUOXETINE [Suspect]
     Active Substance: FLUOXETINE HYDROCHLORIDE
  4. INSULIN NOS [Suspect]
     Active Substance: INSULIN NOS
  5. ZONISAMIDE [Suspect]
     Active Substance: ZONISAMIDE

REACTIONS (6)
  - Crying [Unknown]
  - Apnoea [Unknown]
  - Apgar score low [Unknown]
  - Hypotonia [Unknown]
  - Tremor [Unknown]
  - Foetal exposure during pregnancy [Unknown]
